FAERS Safety Report 24856401 (Version 4)
Quarter: 2025Q3

REPORT INFORMATION
  Report Type: Spontaneous
  Country: US (occurrence: US)
  Receive Date: 20250117
  Receipt Date: 20250702
  Transmission Date: 20251020
  Serious: No
  Sender: GERON CORP
  Company Number: US-GERON CORPORATION-US-GER-25-000005

PATIENT
  Age: 82 Year
  Sex: Male
  Weight: 165 kg

DRUGS (5)
  1. RYTELO [Suspect]
     Active Substance: IMETELSTAT SODIUM
     Indication: Myelodysplastic syndrome
     Dosage: 380 MILLIGRAM, MONTHLY
     Route: 042
     Dates: start: 20241021
  2. RYTELO [Suspect]
     Active Substance: IMETELSTAT SODIUM
     Route: 042
  3. RYTELO [Suspect]
     Active Substance: IMETELSTAT SODIUM
     Route: 042
  4. RYTELO [Suspect]
     Active Substance: IMETELSTAT SODIUM
     Route: 042
  5. RYTELO [Suspect]
     Active Substance: IMETELSTAT SODIUM
     Dosage: UNK, 3W, DOSE DECREASED
     Route: 042
     Dates: start: 20250106

REACTIONS (3)
  - Cytopenia [Recovered/Resolved]
  - Intercepted product preparation error [Unknown]
  - Product preparation error [Unknown]

NARRATIVE: CASE EVENT DATE: 20241216
